FAERS Safety Report 7048547-6 (Version None)
Quarter: 2010Q4

REPORT INFORMATION
  Report Type: 
  Country: None (occurrence: None)
  Receive Date: 20101008
  Receipt Date: 20100930
  Transmission Date: 20110411
  Serious: Yes (Other)
  Sender: FDA-Public Use
  Company Number: TPA2010A05210

PATIENT
  Age: 74 Year
  Sex: Male
  Weight: 87.5442 kg

DRUGS (11)
  1. ACTOS [Suspect]
     Indication: TYPE 2 DIABETES MELLITUS
     Dosage: 1 IN 1 D, PER ORAL
     Route: 048
     Dates: start: 20080219, end: 20090601
  2. MULTIVITAMIN (ERGOCALCIFEROL, ASCORBID ACID, FOLIC ACID, THIAMINE HYDR [Concomitant]
  3. LOW DOSE ASPIRIN (ACETYLSALICYLIC ACID) [Concomitant]
  4. ZYPREXA [Concomitant]
  5. CRESTOR [Concomitant]
  6. ZETIA [Concomitant]
  7. TERAZOSIN HCL [Concomitant]
  8. LUVOX [Concomitant]
  9. IRON (IRON) [Concomitant]
  10. VITAMIN D [Concomitant]
  11. UNKNOWN INSULIN (INSULIN) [Concomitant]

REACTIONS (1)
  - BLADDER CANCER [None]
